FAERS Safety Report 26014063 (Version 1)
Quarter: 2025Q4

REPORT INFORMATION
  Report Type: Spontaneous
  Country: US (occurrence: US)
  Receive Date: 20251108
  Receipt Date: 20251108
  Transmission Date: 20260117
  Serious: Yes (Other)
  Sender: AMGEN
  Company Number: US-AMGEN-USASP2025217501

PATIENT
  Sex: Female

DRUGS (3)
  1. OTEZLA [Suspect]
     Active Substance: APREMILAST
     Indication: Psoriatic arthropathy
     Dosage: 30 MILLIGRAM, BID
     Route: 048
  2. TYLENOL [Concomitant]
     Active Substance: ACETAMINOPHEN
     Indication: Pain
  3. Sulindacum [Concomitant]
     Indication: Psoriatic arthropathy
     Dosage: UNK
     Dates: end: 202506

REACTIONS (4)
  - Psoriatic arthropathy [Unknown]
  - Intervertebral disc degeneration [Unknown]
  - Abdominal discomfort [Recovering/Resolving]
  - Therapeutic product effect decreased [Unknown]
